FAERS Safety Report 22870639 (Version 3)
Quarter: 2024Q1

REPORT INFORMATION
  Report Type: Report from Study
  Country: CO (occurrence: CO)
  Receive Date: 20230828
  Receipt Date: 20240128
  Transmission Date: 20240409
  Serious: Yes (Hospitalization, Other)
  Sender: FDA-Public Use
  Company Number: CO-ABBVIE-5379430

PATIENT
  Sex: Male
  Weight: 80 kg

DRUGS (5)
  1. HUMIRA [Suspect]
     Active Substance: ADALIMUMAB
     Indication: Product used for unknown indication
     Route: 058
     Dates: start: 2015, end: 2019
  2. SKYRIZI [Suspect]
     Active Substance: RISANKIZUMAB-RZAA
     Indication: Psoriasis
     Dosage: FORM STRENGTH: 75 MILLIGRAM
     Route: 058
     Dates: start: 20220531
  3. TRAMADOL [Suspect]
     Active Substance: TRAMADOL\TRAMADOL HYDROCHLORIDE
     Indication: Post procedural complication
     Route: 042
     Dates: start: 202307, end: 202307
  4. LOSARTAN [Concomitant]
     Active Substance: LOSARTAN
     Indication: Coronary artery bypass
     Dosage: 1 UNKNOWN
     Dates: start: 2018
  5. COSENTYX [Concomitant]
     Active Substance: SECUKINUMAB
     Indication: Product used for unknown indication
     Dosage: FREQUENCY TEXT: 1 APPLICATION MONTHLY, START DATE TEXT: BEFORE SKYRIZI

REACTIONS (5)
  - Infarction [Recovered/Resolved]
  - Drug hypersensitivity [Unknown]
  - Post procedural complication [Unknown]
  - Surgery [Unknown]
  - Hypertension [Unknown]

NARRATIVE: CASE EVENT DATE: 20230101
